FAERS Safety Report 7551002-8 (Version None)
Quarter: 2011Q2

REPORT INFORMATION
  Report Type: 
  Country: None (occurrence: None)
  Receive Date: 20110616
  Receipt Date: 20101020
  Transmission Date: 20111010
  Serious: No
  Sender: FDA-Public Use
  Company Number: US-BAYER-201037878NA

PATIENT
  Age: 71 Year
  Sex: Male

DRUGS (1)
  1. AVELOX [Suspect]
     Indication: GINGIVAL INFECTION
     Dosage: 400 MG, QD
     Route: 048
     Dates: start: 20101006, end: 20101007

REACTIONS (4)
  - RASH MACULAR [None]
  - CHEILITIS [None]
  - BLISTER [None]
  - LIP BLISTER [None]
